FAERS Safety Report 5933572-6 (Version None)
Quarter: 2008Q4

REPORT INFORMATION
  Report Type: 
  Country: None (occurrence: None)
  Receive Date: 20081024
  Receipt Date: 20081010
  Transmission Date: 20090506
  Serious: Yes (Other)
  Sender: FDA-Public Use
  Company Number: STI-2008-03107

PATIENT
  Age: 52 Year
  Sex: Male

DRUGS (2)
  1. BETADERM [Suspect]
     Dosage: TOPICAL
     Route: 061
     Dates: start: 20080917, end: 20081003
  2. 014C ZN SHAMPOO (ZINC PYRITHIONE) (PYRITHIONE ZINC) ( SHAMPOO) [Concomitant]

REACTIONS (8)
  - DRUG ADMINISTRATION ERROR [None]
  - DRY SKIN [None]
  - EYE DISORDER [None]
  - EYE IRRITATION [None]
  - INTENTIONAL DRUG MISUSE [None]
  - SKIN ATROPHY [None]
  - SKIN BURNING SENSATION [None]
  - VISUAL IMPAIRMENT [None]
